FAERS Safety Report 5735705-3 (Version None)
Quarter: 2008Q2

REPORT INFORMATION
  Report Type: 
  Country: None (occurrence: None)
  Receive Date: 20080513
  Receipt Date: 20080502
  Transmission Date: 20081010
  Serious: Yes (Congenital Anomaly, Other)
  Sender: FDA-Public Use
  Company Number: GB-ABBOTT-08P-167-0438116-00

PATIENT
  Sex: Male

DRUGS (1)
  1. VALPROIC ACID [Suspect]
     Indication: DRUG EXPOSURE DURING PREGNANCY
     Route: 064

REACTIONS (32)
  - ABNORMAL BEHAVIOUR [None]
  - ASTHMA [None]
  - BALANCE DISORDER [None]
  - BITE [None]
  - CONGENITAL NAIL DISORDER [None]
  - CONGENITAL NOSE MALFORMATION [None]
  - CONSTIPATION [None]
  - DEVELOPMENTAL DELAY [None]
  - DISTRACTIBILITY [None]
  - DRUG EXPOSURE DURING PREGNANCY [None]
  - DYSMORPHISM [None]
  - DYSPNOEA [None]
  - EMOTIONAL DISORDER [None]
  - EXPRESSIVE LANGUAGE DISORDER [None]
  - FALL [None]
  - FEEDING DISORDER OF INFANCY OR EARLY CHILDHOOD [None]
  - FOETAL ANTICONVULSANT SYNDROME [None]
  - FOOT DEFORMITY [None]
  - GRUNTING [None]
  - HEAD BANGING [None]
  - HIP DYSPLASIA [None]
  - HYPERACUSIS [None]
  - LEARNING DISABILITY [None]
  - LIP DISORDER [None]
  - MIDDLE EAR EFFUSION [None]
  - MOOD ALTERED [None]
  - POOR QUALITY SLEEP [None]
  - SKULL MALFORMATION [None]
  - SNORING [None]
  - SPEECH DISORDER [None]
  - VENTRICULAR SEPTAL DEFECT [None]
  - VISION ABNORMAL NEONATAL [None]
